FAERS Safety Report 9394802 (Version 1)
Quarter: 2013Q3

REPORT INFORMATION
  Report Type: Spontaneous
  Country: US (occurrence: US)
  Receive Date: 20130711
  Receipt Date: 20130711
  Transmission Date: 20140515
  Serious: Yes (Other)
  Sender: FDA-Public Use
  Company Number: US-JNJFOC-20130417563

PATIENT
  Age: 54 Year
  Sex: Male

DRUGS (10)
  1. LEVAQUIN [Suspect]
     Indication: PNEUMONIA BACTERIAL
     Dosage: FOR 10 DAYS BUT LAST DOSE WAS TAKEN ON 26-FEB-2013 OR 27-FEB-2013
     Route: 048
     Dates: start: 20130222, end: 201302
  2. LEVAQUIN [Suspect]
     Indication: BRONCHITIS
     Dosage: FOR 10 DAYS BUT LAST DOSE WAS TAKEN ON 26-FEB-2013 OR 27-FEB-2013
     Route: 048
     Dates: start: 20130222, end: 201302
  3. PEXEVA [Concomitant]
     Indication: DEPRESSION
     Route: 065
  4. PREDNISONE [Concomitant]
     Indication: CROHN^S DISEASE
     Route: 065
  5. PREDNISONE [Concomitant]
     Indication: RHEUMATOID ARTHRITIS
     Route: 065
  6. IMURAN [Concomitant]
     Indication: IMMUNOSUPPRESSANT DRUG THERAPY
     Route: 065
     Dates: end: 201304
  7. HYDROCODONE [Concomitant]
     Indication: PAIN
     Route: 065
     Dates: end: 201304
  8. KLONOPIN [Concomitant]
     Indication: ANXIETY
     Route: 065
  9. INHALERS NOS [Concomitant]
     Indication: DYSPNOEA
     Route: 045
     Dates: end: 201304
  10. CONCERTA [Concomitant]
     Indication: POST-TRAUMATIC STRESS DISORDER
     Route: 065

REACTIONS (2)
  - Tendon rupture [Recovering/Resolving]
  - Fall [Not Recovered/Not Resolved]
